FAERS Safety Report 5197825-4 (Version None)
Quarter: 2006Q4

REPORT INFORMATION
  Report Type: 
  Country: None (occurrence: None)
  Receive Date: 20061228
  Receipt Date: 20061221
  Transmission Date: 20070319
  Serious: Yes (Other)
  Sender: FDA-Public Use
  Company Number: 009590

PATIENT
  Sex: Female

DRUGS (5)
  1. MEDROXYPROGESTERONE ACETATE [Suspect]
     Dosage: ORAL
     Route: 048
     Dates: start: 19870101, end: 20010101
  2. ESTRADIOL [Suspect]
     Dosage: ORAL
     Route: 048
     Dates: start: 19870101, end: 20010101
  3. ESTRACE [Suspect]
     Dosage: ORAL
     Route: 048
     Dates: start: 19870101, end: 20010101
  4. CYCRIN [Suspect]
     Dosage: ORAL
     Route: 048
     Dates: start: 19870101, end: 20010101
  5. PROVERA [Suspect]
     Dosage: ORAL
     Route: 048
     Dates: start: 19870101, end: 20010101

REACTIONS (1)
  - BREAST CANCER FEMALE [None]
